FAERS Safety Report 14013727 (Version 3)
Quarter: 2018Q1

REPORT INFORMATION
  Report Type: Spontaneous
  Country: US (occurrence: US)
  Receive Date: 20170926
  Receipt Date: 20180119
  Transmission Date: 20180508
  Serious: Yes (Death, Hospitalization)
  Sender: FDA-Public Use
  Company Number: US-ACTELION-A-NJ2017-159775

PATIENT
  Age: 76 Year
  Sex: Male
  Weight: 86.17 kg

DRUGS (25)
  1. COMBIGAN [Concomitant]
     Active Substance: BRIMONIDINE TARTRATE\TIMOLOL MALEATE
     Dosage: UNK
     Dates: start: 20160808
  2. HYDROCORTISONE. [Concomitant]
     Active Substance: HYDROCORTISONE
  3. HYDRALAZINE [Concomitant]
     Active Substance: HYDRALAZINE HYDROCHLORIDE
     Dosage: 25 MG, UNK
     Dates: start: 20170711
  4. LASIX [Concomitant]
     Active Substance: FUROSEMIDE
     Dosage: 80 MG, QD
  5. LIPITOR [Concomitant]
     Active Substance: ATORVASTATIN CALCIUM
  6. DEPAKOTE [Concomitant]
     Active Substance: DIVALPROEX SODIUM
  7. ABILIFY [Concomitant]
     Active Substance: ARIPIPRAZOLE
  8. CEPHALEXIN. [Concomitant]
     Active Substance: CEPHALEXIN
     Dosage: 500 MG, UNK
     Dates: start: 20170821
  9. GENTAMICIN SULFATE OPHTHALMIC [Concomitant]
     Dosage: UNK
     Dates: start: 20170123
  10. SYNTHROID [Concomitant]
     Active Substance: LEVOTHYROXINE SODIUM
     Indication: HYPOTHYROIDISM
     Dosage: 87.5 MCG, QD
     Dates: start: 20170620
  11. WELLBUTRIN [Concomitant]
     Active Substance: BUPROPION HYDROCHLORIDE
  12. LABETALOL [Concomitant]
     Active Substance: LABETALOL\LABETALOL HYDROCHLORIDE
     Indication: HYPERTENSION
     Dosage: 400 MG, BID
     Dates: start: 20150615
  13. VITAMIN B COMPLEX [Concomitant]
     Active Substance: CYANOCOBALAMIN\DEXPANTHENOL\NIACINAMIDE\PYRIDOXINE HYDROCHLORIDE\RIBOFLAVIN 5^-PHOSPHATE SODIUM\THIAMINE HYDROCHLORIDE\VITAMIN B COMPLEX
     Dosage: UNK
     Dates: start: 20170620
  14. CIPROFLOXACIN HYDROCHLORIDE W/DEXAMETHASONE [Concomitant]
     Active Substance: CIPROFLOXACIN HYDROCHLORIDE\DEXAMETHASONE
     Dosage: UNK, BID
     Dates: start: 20170606
  15. L METHYLFOLATE [Concomitant]
     Dosage: UNK
     Dates: start: 20170412
  16. NIZORAL A-D [Concomitant]
     Active Substance: KETOCONAZOLE
  17. VALCHLOR [Suspect]
     Active Substance: MECHLORETHAMINE
     Indication: MYCOSIS FUNGOIDES
     Dosage: UNK UNK, QPM
     Route: 061
     Dates: start: 20140131
  18. LASIX [Concomitant]
     Active Substance: FUROSEMIDE
     Indication: HYPERTENSION
     Dosage: 40 MG, QD
     Route: 048
     Dates: start: 20160711
  19. ALTABAX [Concomitant]
     Active Substance: RETAPAMULIN
  20. BUPROPION HCL [Concomitant]
     Active Substance: BUPROPION HYDROCHLORIDE
     Indication: DEPRESSION
     Dosage: 300 MG, QD
     Dates: start: 20130306
  21. LABETALOL [Concomitant]
     Active Substance: LABETALOL\LABETALOL HYDROCHLORIDE
     Indication: CARDIAC FAILURE CONGESTIVE
  22. ASPIRIN. [Concomitant]
     Active Substance: ASPIRIN
     Dosage: 81 MG, UNK
     Dates: start: 20140707
  23. PROBENECID. [Concomitant]
     Active Substance: PROBENECID
     Dosage: 500 MG, TID
     Route: 048
     Dates: start: 20160111
  24. MOMETASONE [Concomitant]
     Active Substance: MOMETASONE
     Dosage: UNK, QD
     Dates: start: 20170605
  25. DOXAZOSIN [Concomitant]
     Active Substance: DOXAZOSIN\DOXAZOSIN MESYLATE
     Indication: HYPERTENSION
     Dosage: 8 MG, BID
     Route: 048
     Dates: start: 20170315

REACTIONS (14)
  - Dyspnoea [Recovering/Resolving]
  - Cough [Recovering/Resolving]
  - Hypotension [Unknown]
  - Fluid overload [Unknown]
  - Heart valve stenosis [Unknown]
  - Bradycardia [Unknown]
  - Cardiac failure congestive [Recovered/Resolved]
  - Stent placement [Unknown]
  - Mitral valve incompetence [Unknown]
  - Weight increased [Recovering/Resolving]
  - Anuria [Unknown]
  - Cardiac arrest [Fatal]
  - Dysuria [Unknown]
  - Lung infiltration [Recovering/Resolving]

NARRATIVE: CASE EVENT DATE: 20170629
